FAERS Safety Report 9209589 (Version 1)
Quarter: 2013Q2

REPORT INFORMATION
  Report Type: Spontaneous
  Country: US (occurrence: None)
  Receive Date: 20130403
  Receipt Date: 20130403
  Transmission Date: 20140414
  Serious: No
  Sender: FDA-Public Use
  Company Number: None

PATIENT
  Age: 71 Year
  Sex: Female
  Weight: 90.72 kg

DRUGS (2)
  1. PHENTERMINE [Suspect]
     Indication: OBESITY
     Dosage: 1/2 - 1 TAB EVERY DAY
     Dates: start: 20130225, end: 20130311
  2. PHENTERMINE [Suspect]
     Indication: BLOOD CHOLESTEROL INCREASED
     Dosage: DID NOT WORK TRYED AGAIN

REACTIONS (1)
  - Drug ineffective [None]
